FAERS Safety Report 4394697-2 (Version None)
Quarter: 2004Q3

REPORT INFORMATION
  Report Type: 
  Country: None (occurrence: None)
  Receive Date: 20040712
  Receipt Date: 20040629
  Transmission Date: 20050211
  Serious: Yes (Life-Threatening, Disabling)
  Sender: FDA-Public Use
  Company Number: US-MERCK-0406USA02740

PATIENT
  Age: 34 Year
  Sex: Female

DRUGS (5)
  1. VICODIN [Concomitant]
     Route: 065
  2. ALBUTEROL [Concomitant]
     Route: 065
  3. AEROBID [Concomitant]
     Route: 065
  4. GLUCOPHAGE [Concomitant]
     Route: 065
  5. VIOXX [Suspect]
     Indication: PAIN
     Route: 048
     Dates: start: 20011221, end: 20020101

REACTIONS (9)
  - ABASIA [None]
  - ADVERSE EVENT [None]
  - ASTHMA [None]
  - BACK PAIN [None]
  - BEDRIDDEN [None]
  - DYSKINESIA [None]
  - JOINT SWELLING [None]
  - PAIN [None]
  - SWELLING [None]
